FAERS Safety Report 5628495-6 (Version None)
Quarter: 2008Q1

REPORT INFORMATION
  Report Type: 
  Country: None (occurrence: None)
  Receive Date: 20080215
  Receipt Date: 20080208
  Transmission Date: 20080703
  Serious: Yes (Other)
  Sender: FDA-Public Use
  Company Number: US-GENENTECH-255008

PATIENT
  Sex: Female

DRUGS (7)
  1. XOLAIR [Suspect]
     Indication: ASTHMA
     Dosage: 300 MG, Q4W
     Route: 058
  2. XOLAIR [Suspect]
     Indication: RHINITIS ALLERGIC
  3. SYMBICORT [Concomitant]
     Dosage: 2 PUFF, BID
     Dates: start: 20070927
  4. CLARINEX [Concomitant]
     Dosage: 1 TABLET, QD
     Route: 048
     Dates: start: 20050519
  5. SINGULAIR [Concomitant]
     Dosage: 1 TABLET, QD
     Route: 048
     Dates: start: 20041111
  6. NASONEX [Concomitant]
     Dosage: 2 SPRAYS, QD
     Route: 045
     Dates: start: 20041111
  7. PREDNISONE TAB [Concomitant]
     Indication: DRUG USE FOR UNKNOWN INDICATION
     Dosage: 1 MG/KG, UNK
     Dates: start: 20070920

REACTIONS (4)
  - ANAPHYLACTIC REACTION [None]
  - ANGIOEDEMA [None]
  - URTICARIA [None]
  - WHEEZING [None]
